FAERS Safety Report 17063854 (Version 1)
Quarter: 2019Q4

REPORT INFORMATION
  Report Type: Report from Study
  Country: CO (occurrence: CO)
  Receive Date: 20191122
  Receipt Date: 20191122
  Transmission Date: 20200122
  Serious: Yes (Hospitalization, Other)
  Sender: FDA-Public Use
  Company Number: CO-ASTELLAS-2019US008649

PATIENT
  Age: 87 Year
  Sex: Male
  Weight: 60 kg

DRUGS (1)
  1. ENZALUTAMIDE [Suspect]
     Active Substance: ENZALUTAMIDE
     Indication: HORMONE-REFRACTORY PROSTATE CANCER
     Dosage: 160 MG, OTHER (TAKING TWO CAPSULES AFTER BREAKFAST AND TWO CAPSULES AFTER LUNCH)
     Route: 048
     Dates: start: 20190223

REACTIONS (10)
  - Urinary tract infection [Not Recovered/Not Resolved]
  - Incoherent [Not Recovered/Not Resolved]
  - Decreased appetite [Not Recovered/Not Resolved]
  - Hip fracture [Not Recovered/Not Resolved]
  - Drug intolerance [Unknown]
  - Respiratory arrest [Not Recovered/Not Resolved]
  - Chromaturia [Not Recovered/Not Resolved]
  - Inappropriate schedule of product administration [Unknown]
  - Incorrect dose administered [Not Recovered/Not Resolved]
  - Fall [Not Recovered/Not Resolved]

NARRATIVE: CASE EVENT DATE: 20190223
